FAERS Safety Report 17465613 (Version 3)
Quarter: 2020Q2

REPORT INFORMATION
  Report Type: Spontaneous
  Country: PL (occurrence: PL)
  Receive Date: 20200227
  Receipt Date: 20200415
  Transmission Date: 20200713
  Serious: Yes (Other)
  Sender: FDA-Public Use
  Company Number: PL-ROCHE-2551004

PATIENT
  Sex: Female
  Weight: 48 kg

DRUGS (9)
  1. ONDANSETRON [Concomitant]
     Active Substance: ONDANSETRON
     Indication: BREAST CANCER
     Route: 042
     Dates: start: 20190913, end: 20200124
  2. PELGRAZ [Concomitant]
     Active Substance: PEGFILGRASTIM
     Indication: BREAST CANCER
     Route: 065
     Dates: start: 20190913, end: 20200124
  3. EUTHYROX [Concomitant]
     Active Substance: LEVOTHYROXINE SODIUM
     Route: 065
     Dates: start: 2005
  4. PERJETA [Suspect]
     Active Substance: PERTUZUMAB
     Indication: BREAST CANCER
     Route: 042
     Dates: start: 20190913
  5. HERCEPTIN [Suspect]
     Active Substance: TRASTUZUMAB
     Indication: BREAST CANCER
     Dosage: FREQUENCY TIME: EVERY 3 WEEKS
     Route: 042
     Dates: start: 20190913, end: 20200124
  6. DEXAVEN [Concomitant]
     Active Substance: DEXAMETHASONE
     Indication: BREAST CANCER
     Route: 042
     Dates: start: 20190913, end: 20200124
  7. CARBOPLATIN. [Suspect]
     Active Substance: CARBOPLATIN
     Indication: BREAST CANCER
     Route: 042
     Dates: start: 20190913, end: 20200124
  8. DOCETAXEL. [Suspect]
     Active Substance: DOCETAXEL
     Indication: BREAST CANCER
     Route: 042
     Dates: start: 20190913, end: 20200124
  9. KADCYLA [Suspect]
     Active Substance: ADO-TRASTUZUMAB EMTANSINE
     Indication: BREAST CANCER
     Dosage: FREQUENCY TIME: EVERY 3 WEEKS
     Route: 065
     Dates: start: 20200214

REACTIONS (7)
  - Neoplasm skin [Unknown]
  - Rash [Unknown]
  - Skin induration [Unknown]
  - Induration [Unknown]
  - Off label use [Unknown]
  - Erythema [Unknown]
  - Intentional product use issue [Unknown]
